FAERS Safety Report 8729414 (Version 2)
Quarter: 2012Q4

REPORT INFORMATION
  Report Type: 
  Country: JP (occurrence: JP)
  Receive Date: 20120817
  Receipt Date: 20120903
  Transmission Date: 20130627
  Serious: Yes (Life-Threatening)
  Sender: FDA-Public Use
  Company Number: JP-PFIZER INC-2012198637

PATIENT
  Age: 68 Year
  Sex: Male

DRUGS (1)
  1. ANCARON [Suspect]
     Indication: PRODUCT USED FOR UNKNOWN INDICATION
     Dosage: 200 mg, daily
     Route: 048

REACTIONS (1)
  - Lung disorder [Recovering/Resolving]
